FAERS Safety Report 9887891 (Version 3)
Quarter: 2016Q1

REPORT INFORMATION
  Report Type: Report from Study
  Country: PL (occurrence: PL)
  Receive Date: 20140211
  Receipt Date: 20160225
  Transmission Date: 20160526
  Serious: Yes (Hospitalization)
  Sender: FDA-Public Use
  Company Number: PL-SANOFI-AVENTIS-2012SA059862

PATIENT
  Age: 39 Year
  Sex: Female
  Weight: 95 kg

DRUGS (14)
  1. ALL OTHER THERAPEUTIC PRODUCTS [Concomitant]
     Active Substance: UNSPECIFIED INGREDIENT
     Dates: start: 20110325
  2. ALL OTHER THERAPEUTIC PRODUCTS [Concomitant]
     Active Substance: UNSPECIFIED INGREDIENT
     Dates: start: 20090417
  3. CILEST [Concomitant]
     Active Substance: ETHINYL ESTRADIOL\NORGESTIMATE
     Dosage: DOSE:1 UNIT(S)
     Route: 048
     Dates: start: 200511
  4. DAIVONEX [Concomitant]
     Active Substance: CALCIPOTRIENE
     Indication: PSORIASIS
     Route: 061
     Dates: start: 20090714
  5. CURATODERM [Concomitant]
     Indication: PSORIASIS
     Route: 061
     Dates: start: 20090714
  6. ALL OTHER THERAPEUTIC PRODUCTS [Concomitant]
     Active Substance: UNSPECIFIED INGREDIENT
     Dosage: DOSE:1 UNIT(S)
     Route: 048
     Dates: start: 20090426
  7. TERIFLUNOMIDE [Suspect]
     Active Substance: TERIFLUNOMIDE
     Indication: MULTIPLE SCLEROSIS RELAPSE
     Route: 048
     Dates: start: 20080103
  8. SALICYLIC ACID/BETAMETHASONE [Concomitant]
     Indication: PSORIASIS
     Route: 061
     Dates: start: 20090714
  9. ALL OTHER THERAPEUTIC PRODUCTS [Concomitant]
     Active Substance: UNSPECIFIED INGREDIENT
     Dosage: DOSE:2 UNIT(S)
     Route: 048
     Dates: start: 20110316
  10. MELOXICAM. [Concomitant]
     Active Substance: MELOXICAM
     Dates: start: 20090426
  11. COENZYME Q10 [Concomitant]
     Active Substance: UBIDECARENONE
     Dates: start: 20090426
  12. METFORMAX [Concomitant]
     Active Substance: METFORMIN HYDROCHLORIDE
     Dates: start: 20080411
  13. ORGAMETRIL [Concomitant]
     Active Substance: LYNESTRENOL
     Indication: CONTRACEPTION
     Route: 048
  14. PRESTARIUM [Concomitant]
     Active Substance: PERINDOPRIL
     Indication: HYPERTENSION
     Route: 048
     Dates: start: 20090417

REACTIONS (1)
  - Endometritis [Recovered/Resolved]

NARRATIVE: CASE EVENT DATE: 20120627
